FAERS Safety Report 11274067 (Version 1)
Quarter: 2015Q3

REPORT INFORMATION
  Report Type: Spontaneous
  Country: US (occurrence: US)
  Receive Date: 20150715
  Receipt Date: 20150715
  Transmission Date: 20151125
  Serious: Yes (Hospitalization, Other)
  Sender: FDA-Public Use
  Company Number: US-GLAXOSMITHKLINE-A0926653A

PATIENT
  Age: 87 Year
  Sex: Female

DRUGS (1)
  1. PROMACTA [Suspect]
     Active Substance: ELTROMBOPAG OLAMINE
     Indication: PRODUCT USED FOR UNKNOWN INDICATION
     Dosage: UNK, U
     Route: 048

REACTIONS (12)
  - Dry skin [Unknown]
  - Scab [Unknown]
  - Skin atrophy [Unknown]
  - Skin disorder [Not Recovered/Not Resolved]
  - Musculoskeletal stiffness [Unknown]
  - Skin irritation [Unknown]
  - Condition aggravated [Unknown]
  - Paraesthesia [Unknown]
  - Erythema [Unknown]
  - Pruritus [Unknown]
  - Skin burning sensation [Unknown]
  - Hospitalisation [Not Recovered/Not Resolved]

NARRATIVE: CASE EVENT DATE: 20110425
